FAERS Safety Report 19031785 (Version 1)
Quarter: 2021Q1

REPORT INFORMATION
  Report Type: Spontaneous
  Country: ES (occurrence: ES)
  Receive Date: 20210319
  Receipt Date: 20210319
  Transmission Date: 20210420
  Serious: Yes (Death)
  Sender: FDA-Public Use
  Company Number: ES-PFIZER INC-2021273306

PATIENT
  Age: 66 Year

DRUGS (8)
  1. GABAPENTIN. [Concomitant]
     Active Substance: GABAPENTIN
  2. MEGESTROL [Concomitant]
     Active Substance: MEGESTROL
  3. VINBLASTINE [Suspect]
     Active Substance: VINBLASTINE
     Indication: HODGKIN^S DISEASE STAGE II
     Dosage: UNK, CYCLIC (SIXTH CYCLE)
  4. BLEOMYCIN [Suspect]
     Active Substance: BLEOMYCIN SULFATE
     Indication: HODGKIN^S DISEASE STAGE II
     Dosage: UNK, CYCLIC (SIXTH CYCLE)
  5. DEXAMETHASONE. [Suspect]
     Active Substance: DEXAMETHASONE
     Indication: HODGKIN^S DISEASE STAGE II
     Dosage: UNK, CYCLIC (SIXTH CYCLE)
  6. METAMIZOLE [Concomitant]
     Active Substance: METAMIZOLE
  7. DOXORUBICIN HCL [Suspect]
     Active Substance: DOXORUBICIN HYDROCHLORIDE
     Indication: HODGKIN^S DISEASE
     Dosage: UNK, CYCLIC (SIXTH CYCLE)
  8. ERYTHROPOIETIN [Concomitant]
     Active Substance: ERYTHROPOIETIN

REACTIONS (6)
  - Hepatitis B reactivation [Fatal]
  - Choluria [Unknown]
  - Asthenia [Unknown]
  - Jaundice [Unknown]
  - Encephalopathy [Fatal]
  - Deficiency of bile secretion [Unknown]
